FAERS Safety Report 9317954 (Version 3)
Quarter: 2013Q4

REPORT INFORMATION
  Report Type: Spontaneous
  Country: FR (occurrence: FR)
  Receive Date: 20130530
  Receipt Date: 20131014
  Transmission Date: 20140711
  Serious: Yes (Life-Threatening, Hospitalization)
  Sender: FDA-Public Use
  Company Number: FR-VERTEX PHARMACEUTICALS INC-2013-006541

PATIENT
  Age: 54 Year
  Sex: Male
  Weight: 74 kg

DRUGS (9)
  1. INCIVO [Suspect]
     Indication: HEPATITIS C
     Dosage: 3 DF, UNK
     Route: 048
     Dates: start: 20130225, end: 20130423
  2. INCIVO [Suspect]
     Indication: HEPATIC CIRRHOSIS
  3. RIBAVIRIN [Suspect]
     Indication: HEPATITIS C
     Dosage: DOSAGE FORM: UNSPECIFIED, DOSE 800 (UNIT NOT SPECIFIED)
     Route: 048
     Dates: start: 20130225, end: 20130423
  4. RIBAVIRIN [Suspect]
     Indication: HEPATIC CIRRHOSIS
  5. VIRAFERON PEG [Suspect]
     Indication: HEPATIC CIRRHOSIS
     Dosage: DOSAGE FORM: UNSPECIFIED
     Route: 058
     Dates: start: 20130225, end: 20130423
  6. VIRAFERON PEG [Suspect]
     Indication: HEPATITIS C
  7. LANTUS [Concomitant]
     Indication: DIABETES MELLITUS
     Dosage: DOSAGE FORM: UNSPECIFIED, 10 U/DAY
     Route: 058
     Dates: start: 201310
  8. DOLIPRANE [Concomitant]
     Indication: INFLUENZA LIKE ILLNESS
     Dosage: DOSAGE FORM: UNSPECIFIED, DOSAGE FREQUENCY AS REQUIRED
     Route: 048
     Dates: start: 201302
  9. ATARAX [Concomitant]
     Indication: SLEEP DISORDER
     Dosage: DOSAGE FORM: UNSPECIFIED, 1 TABLET PER DAY
     Route: 048
     Dates: start: 201302, end: 20130423

REACTIONS (2)
  - Septic arthritis staphylococcal [Recovered/Resolved]
  - Staphylococcal sepsis [Unknown]
